FAERS Safety Report 12407602 (Version 3)
Quarter: 2016Q2

REPORT INFORMATION
  Report Type: Report from Study
  Country: CN (occurrence: CN)
  Receive Date: 20160526
  Receipt Date: 20160622
  Transmission Date: 20160815
  Serious: Yes (Hospitalization)
  Sender: FDA-Public Use
  Company Number: CN-ASTRAZENECA-2016SE55122

PATIENT
  Age: 61 Year
  Sex: Male
  Weight: 97.5 kg

DRUGS (2)
  1. LANTUS [Concomitant]
     Active Substance: INSULIN GLARGINE
     Dosage: 8UNTIS IN THE MORNING, 8UNTIS AT NOON, 10UNTIS IN THE EVENING, 14UNTIS AT 21:30 BEFORE SLEEPING
  2. BYETTA [Suspect]
     Active Substance: EXENATIDE
     Indication: DIABETES MELLITUS
     Route: 058
     Dates: start: 20160330, end: 20160422

REACTIONS (2)
  - Blood glucose increased [Recovered/Resolved]
  - Weight increased [Unknown]

NARRATIVE: CASE EVENT DATE: 20160331
